FAERS Safety Report 20391041 (Version 1)
Quarter: 2022Q1

REPORT INFORMATION
  Report Type: Spontaneous
  Country: US (occurrence: None)
  Receive Date: 20220127
  Receipt Date: 20220127
  Transmission Date: 20220423
  Serious: No
  Sender: FDA-Public Use
  Company Number: None

PATIENT
  Age: 83 Year
  Sex: Female
  Weight: 95.25 kg

DRUGS (1)
  1. BENLYSTA [Suspect]
     Active Substance: BELIMUMAB
     Dosage: OTHER FREQUENCY : OVER 1 HOUR AT WEE;?
     Route: 042
     Dates: start: 202109

REACTIONS (2)
  - Thrombosis [None]
  - Skin discolouration [None]
